FAERS Safety Report 20197918 (Version 3)
Quarter: 2022Q4

REPORT INFORMATION
  Report Type: Report from Study
  Country: DE (occurrence: DE)
  Receive Date: 20211217
  Receipt Date: 20221222
  Transmission Date: 20230113
  Serious: Yes (Death, Hospitalization)
  Sender: FDA-Public Use
  Company Number: DE-BoehringerIngelheim-2021-BI-140118

PATIENT
  Age: 65 Year
  Sex: Female
  Weight: 73 kg

DRUGS (8)
  1. DOCETAXEL [Suspect]
     Active Substance: DOCETAXEL
     Indication: Lung adenocarcinoma
     Dosage: 75 MG/M2 DAILY;  BSA ,LIQUID
     Dates: start: 20210924, end: 20210924
  2. NINTEDANIB [Suspect]
     Active Substance: NINTEDANIB
     Indication: Lung adenocarcinoma
     Dosage: 200 MG
     Dates: start: 20210923, end: 20210923
  3. CANDESARTAN [Concomitant]
     Active Substance: CANDESARTAN
     Indication: Drug therapy
     Dosage: 5 MG
     Dates: end: 20211021
  4. FOLIC ACID [Concomitant]
     Active Substance: FOLIC ACID
     Indication: Prophylaxis
     Dosage: 5 MG
     Dates: end: 20211021
  5. METAMIZOLE [Concomitant]
     Active Substance: METAMIZOLE
     Indication: Pain
     Dosage: 500 MG
     Dates: end: 20211021
  6. CHOLECALCIFEROL [Concomitant]
     Active Substance: CHOLECALCIFEROL
     Indication: Prophylaxis
     Dosage: 20000 IU
     Dates: end: 20211021
  7. BISOPROLOL [Concomitant]
     Active Substance: BISOPROLOL
     Indication: Drug therapy
     Dosage: 2.5 MG
     Dates: end: 20211021
  8. LEVOTHYROXINE SODIUM [Concomitant]
     Active Substance: LEVOTHYROXINE SODIUM
     Indication: Drug therapy
     Dosage: 100 MCG
     Dates: end: 20211021

REACTIONS (1)
  - Pneumonitis [Fatal]

NARRATIVE: CASE EVENT DATE: 20211012
